APPROVED DRUG PRODUCT: FLUOCINONIDE
Active Ingredient: FLUOCINONIDE
Strength: 0.05%
Dosage Form/Route: CREAM;TOPICAL
Application: A071500 | Product #001 | TE Code: AB1
Applicant: SUN PHARMA CANADA INC
Approved: Jun 10, 1987 | RLD: No | RS: No | Type: RX